FAERS Safety Report 10215953 (Version 1)
Quarter: 2014Q2

REPORT INFORMATION
  Report Type: Spontaneous
  Country: US (occurrence: None)
  Receive Date: 20140602
  Receipt Date: 20140602
  Transmission Date: 20141212
  Serious: Yes (Other)
  Sender: FDA-Public Use
  Company Number: 2014AP003143

PATIENT
  Sex: 0

DRUGS (1)
  1. ALENDRONATE SODIUM (ALENDRONATE) TABLET [Suspect]
     Indication: PRODUCT USED FOR UNKNOWN INDICATION
     Dates: end: 20120301

REACTIONS (5)
  - Spinal fracture [None]
  - Pain [None]
  - Injury [None]
  - Physical disability [None]
  - Bone disorder [None]
